FAERS Safety Report 4311509-3 (Version None)
Quarter: 2004Q1

REPORT INFORMATION
  Report Type: 
  Country: None (occurrence: None)
  Receive Date: 20040303
  Receipt Date: 20040303
  Transmission Date: 20041129
  Serious: Yes (Hospitalization)
  Sender: FDA-Public Use
  Company Number: None

PATIENT
  Age: 85 Year
  Sex: Male
  Weight: 85 kg

DRUGS (5)
  1. WARFARIN SODIUM [Suspect]
     Indication: ATRIAL FIBRILLATION
     Dosage: 5 MG DAILY ORAL
     Route: 048
  2. DILTIAZEM [Concomitant]
  3. TERAZOCN [Concomitant]
  4. MEDROL [Concomitant]
  5. LEVOFLOXACIN [Concomitant]

REACTIONS (4)
  - FAECAL OCCULT BLOOD POSITIVE [None]
  - INTERNATIONAL NORMALISED RATIO INCREASED [None]
  - PITTING OEDEMA [None]
  - RASH [None]
